FAERS Safety Report 16688482 (Version 1)
Quarter: 2019Q3

REPORT INFORMATION
  Report Type: Spontaneous
  Country: US (occurrence: US)
  Receive Date: 20190809
  Receipt Date: 20190809
  Transmission Date: 20191004
  Serious: No
  Sender: FDA-Public Use
  Company Number: US-PURDUE-USA-2019-0145928

PATIENT
  Age: 32 Year
  Sex: Female

DRUGS (1)
  1. BUTRANS [Suspect]
     Active Substance: BUPRENORPHINE
     Indication: PLEURITIC PAIN
     Dosage: 10 MCG/HR, WEEKLY
     Route: 062
     Dates: start: 20190204, end: 20190206

REACTIONS (11)
  - Urticaria [Recovering/Resolving]
  - Application site pain [Recovering/Resolving]
  - Throat irritation [Recovering/Resolving]
  - Eye pruritus [Recovering/Resolving]
  - Pruritus generalised [Recovering/Resolving]
  - Application site erythema [Recovered/Resolved]
  - Application site inflammation [Recovered/Resolved]
  - Back pain [Recovering/Resolving]
  - Nervous system disorder [Recovering/Resolving]
  - Application site pruritus [Recovering/Resolving]
  - Paraesthesia [Recovering/Resolving]

NARRATIVE: CASE EVENT DATE: 20190204
